FAERS Safety Report 25952496 (Version 1)
Quarter: 2025Q4

REPORT INFORMATION
  Report Type: Spontaneous
  Country: EU (occurrence: EU)
  Receive Date: 20251023
  Receipt Date: 20251023
  Transmission Date: 20260118
  Serious: Yes (Hospitalization)
  Sender: PFIZER
  Company Number: None

PATIENT
  Age: 57 Year
  Sex: Male
  Weight: 87 kg

DRUGS (3)
  1. LORLATINIB [Suspect]
     Active Substance: LORLATINIB
     Indication: Non-small cell lung cancer
     Dosage: 1 DF (100 MG), 1X/DAY (1-0-0)
     Route: 048
     Dates: start: 20250824, end: 20250910
  2. BECLOMETHASONE DIPROPIONATE\FORMOTEROL FUMARATE\GLYCOPYRROLATE [Concomitant]
     Active Substance: BECLOMETHASONE DIPROPIONATE\FORMOTEROL FUMARATE\GLYCOPYRROLATE
     Dosage: UNK (SOLUTION FOR INHALATION IN A PRESSURIZED BOTTLE)
  3. DOXYCYCLINE [Concomitant]
     Active Substance: DOXYCYCLINE
     Dosage: UNK

REACTIONS (6)
  - Tremor [Recovered/Resolved]
  - Dysarthria [Recovered/Resolved]
  - Cognitive disorder [Recovered/Resolved]
  - Face oedema [Recovered/Resolved]
  - Disorientation [Recovered/Resolved]
  - Dyspnoea [Recovered/Resolved]

NARRATIVE: CASE EVENT DATE: 20250908
